FAERS Safety Report 5203146-3 (Version None)
Quarter: 2006Q4

REPORT INFORMATION
  Report Type: 
  Country: None (occurrence: None)
  Receive Date: 20061016
  Receipt Date: 20060206
  Transmission Date: 20070319
  Serious: Yes (Hospitalization)
  Sender: FDA-Public Use
  Company Number: 2006019416

PATIENT
  Age: 54 Year
  Sex: Female
  Weight: 65.318 kg

DRUGS (11)
  1. NEURONTIN [Suspect]
     Indication: NEUROPATHY
     Dosage: 300 MG (100 MG,3 IN 1 D)
     Dates: start: 20051201, end: 20060101
  2. LEXAPRO [Concomitant]
  3. CARDIZEM [Concomitant]
  4. DIGOXIN [Concomitant]
  5. DECADRON [Concomitant]
  6. IRON (IRON) [Concomitant]
  7. MAGNESIUM OXIDE (MAGNESIUM OXIDE) [Concomitant]
  8. PRILOSEC [Concomitant]
  9. ATIVAN [Concomitant]
  10. METHADONE HCL [Concomitant]
  11. RESTORIL [Concomitant]

REACTIONS (4)
  - BRONCHITIS [None]
  - DIZZINESS [None]
  - DRUG INEFFECTIVE [None]
  - SOMNOLENCE [None]
